FAERS Safety Report 6528736-7 (Version None)
Quarter: 2009Q4

REPORT INFORMATION
  Report Type: 
  Country: None (occurrence: None)
  Receive Date: 20091222
  Receipt Date: 20091104
  Transmission Date: 20100525
  Serious: No
  Sender: FDA-Public Use
  Company Number: ALL1-2009-03494

PATIENT
  Age: 10 Year
  Sex: Male
  Weight: 33.6 kg

DRUGS (2)
  1. VYVANSE [Suspect]
     Indication: ASPERGER'S DISORDER
     Dosage: 30 MG, 1X/DAY:QD, ORAL
     Route: 048
     Dates: start: 20091001
  2. ZONISAMIDE [Concomitant]

REACTIONS (4)
  - ABNORMAL BEHAVIOUR [None]
  - EMOTIONAL DISTRESS [None]
  - HOSTILITY [None]
  - OFF LABEL USE [None]
